FAERS Safety Report 8176441-6 (Version None)
Quarter: 2012Q1

REPORT INFORMATION
  Report Type: 
  Country: None (occurrence: None)
  Receive Date: 20120301
  Receipt Date: 20120220
  Transmission Date: 20120608
  Serious: Yes (Hospitalization)
  Sender: FDA-Public Use
  Company Number: CA-JNJFOC-20120210887

PATIENT
  Weight: 70 kg

DRUGS (2)
  1. REMICADE [Suspect]
     Indication: PSORIASIS
     Dosage: 2ND DOSE
     Route: 042
  2. REMICADE [Suspect]
     Dosage: 1ST DOSE
     Route: 042

REACTIONS (3)
  - PUSTULAR PSORIASIS [None]
  - LYMPHADENOPATHY [None]
  - ACNE CYSTIC [None]
